FAERS Safety Report 21133605 (Version 1)
Quarter: 2022Q3

REPORT INFORMATION
  Report Type: Report from Study
  Country: US (occurrence: US)
  Receive Date: 20220726
  Receipt Date: 20220726
  Transmission Date: 20221027
  Serious: Yes (Other)
  Sender: FDA-Public Use
  Company Number: US-INCYTE CORPORATION-2022IN007112

PATIENT

DRUGS (3)
  1. JAKAFI [Suspect]
     Active Substance: RUXOLITINIB
     Indication: Chronic graft versus host disease
     Dosage: 5 MILLIGRAM, QOD
     Route: 065
     Dates: start: 2020
  2. ACYCLOVIR [Concomitant]
     Active Substance: ACYCLOVIR
     Indication: Chronic graft versus host disease
     Dosage: UNK
     Route: 065
  3. TACROLIMUS [Concomitant]
     Active Substance: TACROLIMUS
     Indication: Product used for unknown indication
     Dosage: UNK
     Route: 065

REACTIONS (18)
  - Graft versus host disease [Unknown]
  - Rash macular [Unknown]
  - Tooth disorder [Unknown]
  - Immune system disorder [Unknown]
  - Blister [Unknown]
  - Skin ulcer [Unknown]
  - Pulmonary pain [Not Recovered/Not Resolved]
  - Musculoskeletal chest pain [Unknown]
  - Asthma [Unknown]
  - Lacrimation disorder [Unknown]
  - Stress [Unknown]
  - Pain [Unknown]
  - Back disorder [Unknown]
  - Muscle spasms [Unknown]
  - Disturbance in attention [Unknown]
  - Drug effective for unapproved indication [Unknown]
  - Therapeutic response unexpected [Unknown]
  - Off label use [Unknown]
